FAERS Safety Report 19178917 (Version 2)
Quarter: 2024Q1

REPORT INFORMATION
  Report Type: Spontaneous
  Country: GB (occurrence: GB)
  Receive Date: 20210426
  Receipt Date: 20240125
  Transmission Date: 20240409
  Serious: Yes (Other)
  Sender: FDA-Public Use
  Company Number: GB-002147023-NVSC2021GB080131

PATIENT
  Age: 55 Year
  Sex: Male

DRUGS (9)
  1. BISOPROLOL [Suspect]
     Active Substance: BISOPROLOL\BISOPROLOL FUMARATE
     Indication: Cardiac disorder
     Dosage: UNK
     Route: 065
  2. FUROSEMIDE [Suspect]
     Active Substance: FUROSEMIDE
     Indication: Cardiac disorder
     Dosage: UNK
     Route: 065
  3. TAMSULOSIN [Suspect]
     Active Substance: TAMSULOSIN
     Indication: Cardiac disorder
     Dosage: UNK
     Route: 065
  4. ASPIRIN [Suspect]
     Active Substance: ASPIRIN
     Indication: Cardiac disorder
     Dosage: UNK
     Route: 065
  5. LYRICA [Suspect]
     Active Substance: PREGABALIN
     Indication: Cardiac disorder
     Dosage: UNK
     Route: 065
  6. METOLAZONE [Suspect]
     Active Substance: METOLAZONE
     Indication: Cardiac disorder
     Dosage: UNK
     Route: 065
  7. WARFARIN [Suspect]
     Active Substance: WARFARIN
     Indication: Cardiac disorder
     Dosage: UNK
     Route: 065
  8. SACUBITRIL\VALSARTAN [Suspect]
     Active Substance: SACUBITRIL\VALSARTAN
     Indication: Cardiac disorder
     Dosage: UNK, ONCE A DAY
     Route: 065
  9. SILDENAFIL CITRATE [Suspect]
     Active Substance: SILDENAFIL CITRATE
     Indication: Cardiac disorder
     Dosage: 25 MILLIGRAM
     Route: 065

REACTIONS (2)
  - Cerebrovascular accident [Unknown]
  - Condition aggravated [Unknown]
